FAERS Safety Report 9282995 (Version 1)
Quarter: 2013Q2

REPORT INFORMATION
  Report Type: Spontaneous
  Country: US (occurrence: US)
  Receive Date: 20130510
  Receipt Date: 20130510
  Transmission Date: 20140414
  Serious: No
  Sender: FDA-Public Use
  Company Number: US-GLAXOSMITHKLINE-A0972011A

PATIENT
  Age: 56 Year
  Sex: Female

DRUGS (9)
  1. TYKERB [Suspect]
     Indication: BREAST CANCER
     Dosage: 1500MG PER DAY
     Route: 048
     Dates: start: 201103
  2. SIMVASTATIN [Concomitant]
  3. DIOVAN [Concomitant]
  4. AMBIEN [Concomitant]
  5. UNKNOWN DRUG [Concomitant]
  6. PROTONIX [Concomitant]
  7. DIAZEPAM [Concomitant]
  8. ANASTROZOLE [Concomitant]
  9. CARDIZEM LA [Concomitant]

REACTIONS (4)
  - Rash pruritic [Not Recovered/Not Resolved]
  - Dry skin [Unknown]
  - Scab [Unknown]
  - Rash pustular [Unknown]
